FAERS Safety Report 6327290-2 (Version None)
Quarter: 2009Q3

REPORT INFORMATION
  Report Type: 
  Country: None (occurrence: None)
  Receive Date: 20090825
  Receipt Date: 20090817
  Transmission Date: 20100115
  Serious: Yes (Life-Threatening, Other)
  Sender: FDA-Public Use
  Company Number: US-MERCK-0908USA02804

PATIENT
  Age: 50 Year
  Sex: Female

DRUGS (6)
  1. IVEMEND [Suspect]
     Indication: PROPHYLAXIS OF NAUSEA AND VOMITING
     Route: 042
     Dates: start: 20090817, end: 20090817
  2. IVEMEND [Suspect]
     Route: 042
     Dates: start: 20090817, end: 20090817
  3. FLUOROURACIL AND LEUCOVORIN CALCIUM AND OXALIPLATIN [Concomitant]
     Route: 065
  4. PERCOCET [Concomitant]
     Route: 065
  5. CALCIUM (UNSPECIFIED) [Concomitant]
     Route: 065
  6. MAGNESIUM (UNSPECIFIED) [Concomitant]
     Route: 065

REACTIONS (5)
  - DIZZINESS [None]
  - EYE ROLLING [None]
  - LOSS OF CONSCIOUSNESS [None]
  - PALLOR [None]
  - THROAT TIGHTNESS [None]
